FAERS Safety Report 20626752 (Version 1)
Quarter: 2022Q1

REPORT INFORMATION
  Report Type: Report from Study
  Country: US (occurrence: US)
  Receive Date: 20220323
  Receipt Date: 20220323
  Transmission Date: 20220423
  Serious: Yes (Other)
  Sender: FDA-Public Use
  Company Number: US-NOVARTISPH-NVSC2022US063362

PATIENT
  Age: 19 Year
  Sex: Male

DRUGS (1)
  1. DEXAMETHASONE [Suspect]
     Active Substance: DEXAMETHASONE
     Indication: Product used for unknown indication
     Dosage: UNK
     Route: 065

REACTIONS (5)
  - Immune thrombocytopenia [Unknown]
  - Migraine [Unknown]
  - Cognitive disorder [Unknown]
  - Negative thoughts [Unknown]
  - Loss of personal independence in daily activities [Unknown]
